FAERS Safety Report 4756585-9 (Version None)
Quarter: 2005Q3

REPORT INFORMATION
  Report Type: 
  Country: None (occurrence: None)
  Receive Date: 20050830
  Receipt Date: 20050819
  Transmission Date: 20060218
  Serious: Yes (Hospitalization)
  Sender: FDA-Public Use
  Company Number: CA-ROCHE-414913

PATIENT
  Age: 22 Year
  Sex: Male

DRUGS (3)
  1. ACCUTANE [Suspect]
     Indication: ACNE
     Route: 048
     Dates: start: 20050323, end: 20050615
  2. ACETAMINOPHEN [Concomitant]
     Route: 048
  3. UNSPECIFIED MEDICATION [Concomitant]
     Route: 048

REACTIONS (4)
  - DISTURBANCE IN ATTENTION [None]
  - MANIA [None]
  - RASH [None]
  - STRESS [None]
